FAERS Safety Report 9611366 (Version 1)
Quarter: 2013Q4

REPORT INFORMATION
  Report Type: Spontaneous
  Country: US (occurrence: US)
  Receive Date: 20131010
  Receipt Date: 20131010
  Transmission Date: 20140711
  Serious: No
  Sender: FDA-Public Use
  Company Number: US-BIOGENIDEC-2013BI096394

PATIENT
  Age: 44 Year
  Sex: Female

DRUGS (1)
  1. TYSABRI [Suspect]
     Indication: MULTIPLE SCLEROSIS
     Route: 042
     Dates: start: 20090306, end: 20110921

REACTIONS (6)
  - Bronchitis chronic [Recovered/Resolved]
  - Weight decreased [Recovered/Resolved]
  - Psoriasis [Recovered/Resolved]
  - Fall [Not Recovered/Not Resolved]
  - Herpes ophthalmic [Recovered/Resolved]
  - Sinusitis [Recovered/Resolved]
